FAERS Safety Report 7536068-3 (Version None)
Quarter: 2011Q2

REPORT INFORMATION
  Report Type: 
  Country: None (occurrence: None)
  Receive Date: 20110609
  Receipt Date: 20110606
  Transmission Date: 20111010
  Serious: Yes (Hospitalization)
  Sender: FDA-Public Use
  Company Number: US-SANOFI-AVENTIS-2011SA029031

PATIENT
  Age: 70 Year
  Sex: Male

DRUGS (7)
  1. LASIX [Suspect]
     Route: 065
  2. BLINDED THERAPY [Suspect]
     Route: 065
  3. RENIN-ANGIOTENSIN SYSTEM, AGENTS ACTING ON [Concomitant]
     Dates: start: 20101201
  4. CARVEDILOL [Suspect]
     Route: 065
  5. ASPIRIN [Concomitant]
     Dates: start: 20101201
  6. LISINOPRIL [Suspect]
  7. BLINDED THERAPY [Suspect]
     Route: 065
     Dates: start: 20101201

REACTIONS (9)
  - RENAL FAILURE ACUTE [None]
  - SYSTEMIC INFLAMMATORY RESPONSE SYNDROME [None]
  - HYPERKALAEMIA [None]
  - DIARRHOEA [None]
  - ABDOMINAL PAIN [None]
  - ANGINA PECTORIS [None]
  - CELLULITIS [None]
  - ERYTHEMA [None]
  - HYPOTENSION [None]
